FAERS Safety Report 8273121-3 (Version None)
Quarter: 2012Q2

REPORT INFORMATION
  Report Type: 
  Country: None (occurrence: None)
  Receive Date: 20120411
  Receipt Date: 20120405
  Transmission Date: 20120825
  Serious: Yes (Other)
  Sender: FDA-Public Use
  Company Number: GR-BAYER-2012-033772

PATIENT
  Age: 30 Year
  Sex: Male
  Weight: 65 kg

DRUGS (3)
  1. NASONEX [Concomitant]
     Indication: RHINITIS ALLERGIC
     Dosage: TID
  2. LEVOCETIRIZINE DIHYDROCHLORIDE [Concomitant]
     Indication: RHINITIS ALLERGIC
     Dosage: QD
  3. MOXIFLOXACIN HCL [Suspect]
     Indication: ACUTE SINUSITIS
     Dosage: 400 MG, QD
     Route: 048
     Dates: start: 20120402, end: 20120403

REACTIONS (1)
  - PARALYSIS [None]
